FAERS Safety Report 25955201 (Version 4)
Quarter: 2025Q4

REPORT INFORMATION
  Report Type: Spontaneous
  Country: MX (occurrence: MX)
  Receive Date: 20251024
  Receipt Date: 20251211
  Transmission Date: 20260117
  Serious: Yes (Other)
  Sender: ROCHE
  Company Number: MX-ROCHE-10000414288

PATIENT
  Age: 34 Year
  Sex: Female
  Weight: 45 kg

DRUGS (6)
  1. OCREVUS [Suspect]
     Active Substance: OCRELIZUMAB
     Indication: Multiple sclerosis
     Dosage: LAST DOSE SHE RECEIVED FROM OCRELIZUMAB WAS IN NOV-2023
     Route: 042
     Dates: start: 2022
  2. OCREVUS [Suspect]
     Active Substance: OCRELIZUMAB
     Route: 042
     Dates: start: 202510
  3. GLATIRAMER ACETATE [Suspect]
     Active Substance: GLATIRAMER ACETATE
     Indication: Multiple sclerosis
     Dosage: DOSE AND FREQUENCY WERE NOT REPORTED
  4. NAPROXEN [Concomitant]
     Active Substance: NAPROXEN
     Indication: Mastitis
  5. VITAMIN D [Concomitant]
     Active Substance: VITAMIN D NOS
     Dosage: DOSE WAS NOT REPORTED
     Route: 048
  6. FOLIC ACID [Concomitant]
     Active Substance: FOLIC ACID
     Dosage: DOSE WAS NOT REPORTED
     Route: 048
     Dates: start: 202503

REACTIONS (6)
  - Multiple sclerosis [Recovered/Resolved]
  - Drug hypersensitivity [Recovered/Resolved]
  - Maternal exposure before pregnancy [Unknown]
  - Somnolence [Recovered/Resolved]
  - Maternal exposure during breast feeding [Unknown]
  - Product prescribing error [Unknown]

NARRATIVE: CASE EVENT DATE: 20240601
